FAERS Safety Report 4808174-5 (Version None)
Quarter: 2005Q4

REPORT INFORMATION
  Report Type: 
  Country: None (occurrence: None)
  Receive Date: 20051020
  Receipt Date: 20050920
  Transmission Date: 20060501
  Serious: Yes (Hospitalization, Other)
  Sender: FDA-Public Use
  Company Number: ATO-05-0275

PATIENT
  Age: 36 Year
  Sex: Female

DRUGS (5)
  1. TRISENOX [Suspect]
     Indication: ACUTE PROMYELOCYTIC LEUKAEMIA
     Dosage: SEE IMAGE
     Route: 042
     Dates: start: 20050609, end: 20050618
  2. TRISENOX [Suspect]
     Indication: ACUTE PROMYELOCYTIC LEUKAEMIA
     Dosage: SEE IMAGE
     Route: 042
     Dates: start: 20050711, end: 20050713
  3. ATRA [Suspect]
     Indication: ACUTE PROMYELOCYTIC LEUKAEMIA
     Dates: start: 20050502, end: 20050508
  4. SULFAMETHOXAZOLE + TRIMETHOPRIM [Concomitant]
  5. MEROPENEM [Concomitant]

REACTIONS (1)
  - PERICARDIAL EFFUSION [None]
